FAERS Safety Report 8549038-3 (Version None)
Quarter: 2012Q3

REPORT INFORMATION
  Report Type: 
  Country: None (occurrence: None)
  Receive Date: 20120730
  Receipt Date: 20120720
  Transmission Date: 20120928
  Serious: Yes (Hospitalization)
  Sender: FDA-Public Use
  Company Number: US-BAYER-2012-073662

PATIENT
  Age: 31 Year
  Sex: Female
  Weight: 97.959 kg

DRUGS (4)
  1. WELLBUTRIN XL [Concomitant]
     Dosage: 300 MG, UNK
     Dates: start: 20080109
  2. YASMIN [Suspect]
  3. ALDACTONE [Concomitant]
     Dosage: 100 MG, UNK
     Dates: start: 20080211
  4. YAZ [Suspect]

REACTIONS (4)
  - BILE DUCT STONE [None]
  - CHOLECYSTITIS ACUTE [None]
  - DEEP VEIN THROMBOSIS [None]
  - PULMONARY EMBOLISM [None]
